FAERS Safety Report 5156213-7 (Version None)
Quarter: 2006Q4

REPORT INFORMATION
  Report Type: 
  Country: None (occurrence: None)
  Receive Date: 20061122
  Receipt Date: 20051215
  Transmission Date: 20070319
  Serious: Yes (Death, Other)
  Sender: FDA-Public Use
  Company Number: CA-NOVOPROD-249370

PATIENT
  Sex: Male
  Weight: 91 kg

DRUGS (7)
  1. NOVOSEVEN [Suspect]
     Indication: CEREBRAL HAEMORRHAGE
     Dosage: 80 UG/KG, UNK
     Route: 042
     Dates: start: 20051120, end: 20051120
  2. PHENYTOIN SODIUM CAP [Concomitant]
     Dosage: 450 MG, QD
     Route: 048
     Dates: start: 20051120
  3. ACETAMINOPHEN [Concomitant]
     Dosage: 650 MG, PRN
     Route: 048
     Dates: start: 20051120
  4. CANDESARTAN [Concomitant]
     Dosage: 4 MG, QD
     Route: 048
     Dates: end: 20051207
  5. ATENOLOL [Concomitant]
     Dosage: 50 MG, QD
     Route: 048
     Dates: end: 20051207
  6. HEPARIN [Concomitant]
     Dosage: 10,000 U, QD
     Route: 058
     Dates: start: 20051128, end: 20051209
  7. ZOPICLONE [Concomitant]
     Dosage: 7.5 MG, QD
     Route: 048
     Dates: start: 20051129, end: 20051208

REACTIONS (14)
  - ACUTE MYOCARDIAL INFARCTION [None]
  - APNOEA [None]
  - ATRIAL FIBRILLATION [None]
  - CARDIAC ARREST [None]
  - CHEST DISCOMFORT [None]
  - CONVULSION [None]
  - DIZZINESS [None]
  - DYSPNOEA [None]
  - HYPERHIDROSIS [None]
  - INSOMNIA [None]
  - NAUSEA [None]
  - PALPITATIONS [None]
  - SINUS TACHYCARDIA [None]
  - VENTRICULAR FIBRILLATION [None]
